FAERS Safety Report 8544556 (Version 2)
Quarter: 2013Q1

REPORT INFORMATION
  Report Type: Spontaneous
  Country: BR (occurrence: BR)
  Receive Date: 20120503
  Receipt Date: 20130321
  Transmission Date: 20140127
  Serious: Yes (Hospitalization, Other)
  Sender: FDA-Public Use
  Company Number: BR-ROCHE-1063375

PATIENT
  Sex: Male
  Weight: 78 kg

DRUGS (1)
  1. ROACUTAN [Suspect]
     Indication: ACNE
     Route: 048
     Dates: start: 201107

REACTIONS (3)
  - Depression [Recovering/Resolving]
  - Suicidal ideation [Recovering/Resolving]
  - Toothache [Unknown]
